FAERS Safety Report 13532942 (Version 1)
Quarter: 2017Q2

REPORT INFORMATION
  Report Type: Spontaneous
  Country: TW (occurrence: TW)
  Receive Date: 20170510
  Receipt Date: 20170510
  Transmission Date: 20170830
  Serious: Yes (Death, Other)
  Sender: FDA-Public Use
  Company Number: TW-PFIZER INC-2017204473

PATIENT
  Age: 86 Year
  Sex: Female

DRUGS (1)
  1. XELJANZ [Suspect]
     Active Substance: TOFACITINIB CITRATE
     Indication: RHEUMATOID ARTHRITIS
     Dosage: 5 MG, BID
     Route: 048
     Dates: start: 201603

REACTIONS (2)
  - Fall [Unknown]
  - Haemorrhage intracranial [Fatal]

NARRATIVE: CASE EVENT DATE: 20170428
